FAERS Safety Report 6918090-0 (Version None)
Quarter: 2010Q3

REPORT INFORMATION
  Report Type: 
  Country: None (occurrence: None)
  Receive Date: 20100810
  Receipt Date: 20100803
  Transmission Date: 20110219
  Serious: Yes (Death, Hospitalization)
  Sender: FDA-Public Use
  Company Number: US-SANOFI-AVENTIS-2010SA046582

PATIENT
  Sex: Male

DRUGS (3)
  1. OXALIPLATIN [Suspect]
     Route: 041
  2. DOCETAXEL [Suspect]
     Route: 041
  3. CETUXIMAB [Suspect]
     Route: 041

REACTIONS (1)
  - DEATH [None]
